FAERS Safety Report 4343609-6 (Version None)
Quarter: 2004Q2

REPORT INFORMATION
  Report Type: 
  Country: None (occurrence: None)
  Receive Date: 20040419
  Receipt Date: 20040408
  Transmission Date: 20050107
  Serious: Yes (Hospitalization)
  Sender: FDA-Public Use
  Company Number: HQWYE406009APR04

PATIENT
  Age: 60 Year
  Sex: Female
  Weight: 65.6 kg

DRUGS (1)
  1. MYLOTARG [Suspect]
     Indication: ACUTE MYELOID LEUKAEMIA
     Dosage: INTRAVENOUS
     Route: 042
     Dates: start: 20040331, end: 20040331

REACTIONS (2)
  - PANCYTOPENIA [None]
  - PYREXIA [None]
